FAERS Safety Report 9816574 (Version 3)
Quarter: 2014Q1

REPORT INFORMATION
  Report Type: Spontaneous
  Country: US (occurrence: US)
  Receive Date: 20140114
  Receipt Date: 20140218
  Transmission Date: 20141002
  Serious: Yes (Hospitalization, Other)
  Sender: FDA-Public Use
  Company Number: US-ELI_LILLY_AND_COMPANY-US201311002569

PATIENT
  Age: 73 Year
  Sex: Male
  Weight: 90.7 kg

DRUGS (8)
  1. EFFIENT [Suspect]
     Indication: STENT PLACEMENT
     Dosage: 10 MG, QD
     Route: 048
     Dates: start: 20130112, end: 20130710
  2. BABY ASPIRIN [Concomitant]
  3. PRAVASTATIN [Concomitant]
  4. PROTONIX [Concomitant]
  5. METOPROLOL [Concomitant]
     Dosage: 25 MG, BID
     Route: 048
  6. LESCOL [Concomitant]
     Indication: RESTLESS LEGS SYNDROME
  7. ZETIA [Concomitant]
  8. ASPIRIN [Concomitant]
     Dosage: UNK

REACTIONS (6)
  - Chest pain [Unknown]
  - Angioedema [Recovered/Resolved with Sequelae]
  - Cholelithiasis [Unknown]
  - Impaired gastric emptying [Unknown]
  - Helicobacter gastritis [Unknown]
  - Abdominal pain upper [Unknown]
